FAERS Safety Report 21258783 (Version 3)
Quarter: 2022Q4

REPORT INFORMATION
  Report Type: Report from Study
  Country: IT (occurrence: IT)
  Receive Date: 20220826
  Receipt Date: 20221003
  Transmission Date: 20230113
  Serious: Yes (Death, Other)
  Sender: FDA-Public Use
  Company Number: IT-NOVARTISPH-NVSC2022IT155399

PATIENT
  Age: 60 Year
  Sex: Male
  Weight: 61 kg

DRUGS (4)
  1. TRAMETINIB [Suspect]
     Active Substance: TRAMETINIB
     Indication: Pancreatic carcinoma metastatic
     Dosage: 2 MG, QD
     Route: 048
     Dates: start: 20220616, end: 20220629
  2. TRAMETINIB [Suspect]
     Active Substance: TRAMETINIB
     Dosage: 1.5 MG, QD
     Route: 048
     Dates: start: 20220701, end: 20220727
  3. DABRAFENIB [Suspect]
     Active Substance: DABRAFENIB
     Indication: Pancreatic carcinoma
     Dosage: 300 MG
     Route: 048
     Dates: start: 20220616, end: 20220727
  4. LEVOTHYROXINE SODIUM [Concomitant]
     Active Substance: LEVOTHYROXINE SODIUM
     Indication: Hypothyroidism
     Dosage: 100 UG
     Route: 065

REACTIONS (8)
  - Malignant neoplasm progression [Fatal]
  - Pancreatic carcinoma metastatic [Fatal]
  - Ascites [Unknown]
  - Vomiting [Recovered/Resolved]
  - General physical health deterioration [Unknown]
  - Weight decreased [Unknown]
  - Vomiting [Recovering/Resolving]
  - Asthenia [Unknown]

NARRATIVE: CASE EVENT DATE: 20220627
